FAERS Safety Report 8881722 (Version 1)
Quarter: 2012Q4

REPORT INFORMATION
  Report Type: 
  Country: TW (occurrence: TW)
  Receive Date: 20121101
  Receipt Date: 20121101
  Transmission Date: 20130627
  Serious: Yes (Hospitalization)
  Sender: FDA-Public Use
  Company Number: TW-MYLANLABS-2012S1022092

PATIENT
  Age: 30 Year
  Sex: Female

DRUGS (3)
  1. VENLAFAXINE [Suspect]
     Indication: MULTIPLE DRUG OVERDOSE INTENTIONAL
     Dosage: probably consumed a 1-month prescription of venlafaxine 150mg
     Route: 048
  2. BUPROPION [Suspect]
     Indication: MULTIPLE DRUG OVERDOSE INTENTIONAL
     Dosage: probably consumed a 1-month prescription of bupropion 300mg
     Route: 048
  3. LORAZEPAM [Suspect]
     Indication: MULTIPLE DRUG OVERDOSE INTENTIONAL
     Dosage: probably consumed a 1-month prescription of lorazepam 3mg
     Route: 048

REACTIONS (10)
  - Intentional overdose [Unknown]
  - Central nervous system necrosis [Unknown]
  - Tachycardia [Unknown]
  - Suicide attempt [Unknown]
  - Serotonin syndrome [Unknown]
  - Electrocardiogram QRS complex prolonged [Recovered/Resolved]
  - Somnolence [Unknown]
  - Confusional state [Unknown]
  - Myoclonus [Unknown]
  - Pyrexia [Recovered/Resolved]
